FAERS Safety Report 10861329 (Version 1)
Quarter: 2015Q1

REPORT INFORMATION
  Report Type: Spontaneous
  Country: US (occurrence: US)
  Receive Date: 20150224
  Receipt Date: 20150224
  Transmission Date: 20150721
  Serious: Yes (Other)
  Sender: FDA-Public Use
  Company Number: US-JNJFOC-20150211659

PATIENT
  Age: 61 Year
  Sex: Female

DRUGS (3)
  1. OMEPRAZOLE. [Concomitant]
     Active Substance: OMEPRAZOLE
     Route: 065
  2. ASPIRIN. [Concomitant]
     Active Substance: ASPIRIN
     Route: 065
  3. STELARA [Suspect]
     Active Substance: USTEKINUMAB
     Indication: PSORIATIC ARTHROPATHY
     Dosage: 19 OR 21 NOV-2014
     Route: 058
     Dates: start: 201411

REACTIONS (6)
  - Swelling face [Unknown]
  - Headache [Unknown]
  - Pancreatic enlargement [Unknown]
  - Hepatic mass [Unknown]
  - Splenomegaly [Unknown]
  - Swelling [Unknown]

NARRATIVE: CASE EVENT DATE: 20141120
